FAERS Safety Report 18853754 (Version 1)
Quarter: 2021Q1

REPORT INFORMATION
  Report Type: Spontaneous
  Country: US (occurrence: US)
  Receive Date: 20210205
  Receipt Date: 20210205
  Transmission Date: 20210420
  Serious: Yes (Hospitalization, Other)
  Sender: FDA-Public Use
  Company Number: US-SAGENT PHARMACEUTICALS-2021SAG000172

PATIENT

DRUGS (4)
  1. HALOPERIDOL LACTATE. [Suspect]
     Active Substance: HALOPERIDOL LACTATE
     Indication: CHOREA
  2. TETRABENAZINE. [Suspect]
     Active Substance: TETRABENAZINE
     Indication: BALLISMUS
  3. HALOPERIDOL LACTATE. [Suspect]
     Active Substance: HALOPERIDOL LACTATE
     Indication: BALLISMUS
     Dosage: UNK
  4. TETRABENAZINE. [Suspect]
     Active Substance: TETRABENAZINE
     Indication: CHOREA
     Dosage: UNK

REACTIONS (3)
  - Sedation [Unknown]
  - Diarrhoea [Unknown]
  - Mental status changes [Unknown]
